FAERS Safety Report 5945111-4 (Version None)
Quarter: 2008Q4

REPORT INFORMATION
  Report Type: 
  Country: None (occurrence: None)
  Receive Date: 20081107
  Receipt Date: 20081103
  Transmission Date: 20090506
  Serious: Yes (Hospitalization)
  Sender: FDA-Public Use
  Company Number: A0743071A

PATIENT
  Age: 73 Year
  Sex: Male

DRUGS (4)
  1. AVODART [Suspect]
     Indication: BENIGN PROSTATIC HYPERPLASIA
     Dosage: .5MG PER DAY
     Route: 048
     Dates: start: 20070101
  2. UROXATRAL [Suspect]
     Dosage: 10MG PER DAY
     Route: 065
     Dates: start: 20060201, end: 20080401
  3. TOPROL-XL [Concomitant]
  4. COUMADIN [Concomitant]

REACTIONS (5)
  - ATRIAL FLUTTER [None]
  - DRUG INEFFECTIVE [None]
  - HEART RATE INCREASED [None]
  - PROSTATIC SPECIFIC ANTIGEN INCREASED [None]
  - PROSTATOMEGALY [None]
